FAERS Safety Report 15160688 (Version 1)
Quarter: 2018Q3

REPORT INFORMATION
  Report Type: Spontaneous
  Country: US (occurrence: US)
  Receive Date: 20180718
  Receipt Date: 20180718
  Transmission Date: 20181010
  Serious: No
  Sender: FDA-Public Use
  Company Number: US-BIOGEN-2018BI00608729

PATIENT
  Sex: Male

DRUGS (1)
  1. TECFIDERA [Suspect]
     Active Substance: DIMETHYL FUMARATE
     Indication: MULTIPLE SCLEROSIS
     Route: 048
     Dates: start: 20170802

REACTIONS (5)
  - Drug dose omission [Unknown]
  - Feeling abnormal [Unknown]
  - Gait disturbance [Unknown]
  - Abdominal discomfort [Unknown]
  - Paraesthesia [Unknown]
